FAERS Safety Report 11138161 (Version 2)
Quarter: 2015Q2

REPORT INFORMATION
  Report Type: Spontaneous
  Country: US (occurrence: US)
  Receive Date: 20150526
  Receipt Date: 20150528
  Transmission Date: 20150821
  Serious: Yes (Other)
  Sender: FDA-Public Use
  Company Number: PHHY2015US061045

PATIENT
  Age: 53 Year

DRUGS (5)
  1. TAMOXIFEN [Concomitant]
     Active Substance: TAMOXIFEN
     Indication: PRODUCT USED FOR UNKNOWN INDICATION
     Route: 065
  2. TESTOSTERONE. [Suspect]
     Active Substance: TESTOSTERONE
     Indication: VIRILISM
     Route: 065
  3. TESTOSTERONE. [Concomitant]
     Active Substance: TESTOSTERONE
     Indication: VIRILISM
     Route: 065
  4. LETROZOLE. [Suspect]
     Active Substance: LETROZOLE
     Indication: ENDOMETRIOSIS
     Route: 065
  5. EXEMESTANE. [Concomitant]
     Active Substance: EXEMESTANE
     Indication: PRODUCT USED FOR UNKNOWN INDICATION
     Route: 065

REACTIONS (3)
  - Intraductal proliferative breast lesion [Recovered/Resolved]
  - Breast mass [Recovered/Resolved]
  - Arthropathy [Recovered/Resolved]
